FAERS Safety Report 7075715-X (Version None)
Quarter: 2010Q4

REPORT INFORMATION
  Report Type: 
  Country: None (occurrence: None)
  Receive Date: 20101101
  Receipt Date: 20101022
  Transmission Date: 20110411
  Serious: Yes (Hospitalization)
  Sender: FDA-Public Use
  Company Number: DE-BIOGENIDEC-2010BI018813

PATIENT
  Age: 34 Year
  Sex: Female

DRUGS (5)
  1. TYSABRI [Suspect]
     Indication: RELAPSING-REMITTING MULTIPLE SCLEROSIS
     Route: 042
     Dates: start: 20100301
  2. CETIRIZINE HCL [Concomitant]
  3. ACETYLCYSTEINE [Concomitant]
  4. CYMBALTA [Concomitant]
  5. SULPIRID [Concomitant]

REACTIONS (4)
  - HEMIPARESIS [None]
  - MASTOIDITIS [None]
  - PAIN IN EXTREMITY [None]
  - SINUS POLYP DEGENERATION [None]
